FAERS Safety Report 14565673 (Version 1)
Quarter: 2018Q1

REPORT INFORMATION
  Report Type: Report from Study
  Country: US (occurrence: US)
  Receive Date: 20180223
  Receipt Date: 20180223
  Transmission Date: 20180509
  Serious: Yes (Other)
  Sender: FDA-Public Use
  Company Number: US-BIOGEN-2015BI052131

PATIENT
  Age: 41 Year
  Sex: Female

DRUGS (3)
  1. TYSABRI [Suspect]
     Active Substance: NATALIZUMAB
     Route: 065
     Dates: end: 20150413
  2. TYSABRI [Suspect]
     Active Substance: NATALIZUMAB
     Indication: MULTIPLE SCLEROSIS
     Route: 065
     Dates: start: 20130530
  3. TYSABRI [Suspect]
     Active Substance: NATALIZUMAB
     Route: 042
     Dates: start: 20130626, end: 20141209

REACTIONS (14)
  - Tooth extraction [Recovered/Resolved]
  - Stress [Not Recovered/Not Resolved]
  - Bronchitis [Recovered/Resolved]
  - Weight increased [Recovered/Resolved]
  - Central nervous system lesion [Recovered/Resolved]
  - Oral pain [Recovered/Resolved]
  - Migraine [Not Recovered/Not Resolved]
  - Osteomyelitis [Recovered/Resolved]
  - Tooth loss [Not Recovered/Not Resolved]
  - Vertigo [Recovered/Resolved]
  - Fungal infection [Recovered/Resolved]
  - Mobility decreased [Recovered/Resolved]
  - Sinusitis [Recovered/Resolved]
  - Urinary tract infection [Recovered/Resolved]

NARRATIVE: CASE EVENT DATE: 2013
